FAERS Safety Report 4700550-4 (Version None)
Quarter: 2005Q2

REPORT INFORMATION
  Report Type: 
  Country: None (occurrence: None)
  Receive Date: 20050627
  Receipt Date: 20050627
  Transmission Date: 20051028
  Serious: Yes (Other)
  Sender: FDA-Public Use
  Company Number: None

PATIENT
  Age: 48 Year
  Sex: Female
  Weight: 92.9874 kg

DRUGS (1)
  1. BUPROPION SR     150MG    TEVA PHARMA [Suspect]
     Indication: DISTURBANCE IN ATTENTION
     Dosage: 150MG   BID   ORAL
     Route: 048
     Dates: start: 20041226, end: 20050616

REACTIONS (4)
  - DYSGEUSIA [None]
  - FEELING ABNORMAL [None]
  - NAUSEA [None]
  - PHARMACEUTICAL PRODUCT COMPLAINT [None]
